FAERS Safety Report 19200204 (Version 1)
Quarter: 2021Q2

REPORT INFORMATION
  Report Type: Spontaneous
  Country: US (occurrence: US)
  Receive Date: 20210428
  Receipt Date: 20210428
  Transmission Date: 20210717
  Serious: Yes (Hospitalization)
  Sender: FDA-Public Use
  Company Number: None

PATIENT
  Age: 71 Year
  Sex: Male

DRUGS (1)
  1. MYCAPSSA [Suspect]
     Active Substance: OCTREOTIDE
     Indication: LYMPHATIC DISORDER
     Route: 048

REACTIONS (3)
  - Weight decreased [None]
  - Quality of life decreased [None]
  - Urticaria [None]

NARRATIVE: CASE EVENT DATE: 20210427
